FAERS Safety Report 8785103 (Version 1)
Quarter: 2012Q4

REPORT INFORMATION
  Report Type: 
  Country: US (occurrence: US)
  Receive Date: 20120914
  Receipt Date: 20120914
  Transmission Date: 20130627
  Serious: Yes (Hospitalization, Other)
  Sender: FDA-Public Use
  Company Number: US-JNJFOC-20120903328

PATIENT

DRUGS (1)
  1. RISPERDAL CONSTA [Suspect]
     Indication: SCHIZOPHRENIA
     Route: 030

REACTIONS (3)
  - Hospitalisation [Not Recovered/Not Resolved]
  - Schizophrenia [Not Recovered/Not Resolved]
  - Drug dose omission [Not Recovered/Not Resolved]
